FAERS Safety Report 12356685 (Version 4)
Quarter: 2016Q3

REPORT INFORMATION
  Report Type: Report from Study
  Country: CA (occurrence: CA)
  Receive Date: 20160511
  Receipt Date: 20160707
  Transmission Date: 20161109
  Serious: Yes (Life-Threatening, Other)
  Sender: FDA-Public Use
  Company Number: CA-GLAXOSMITHKLINE-CA2016GSK064739

PATIENT
  Sex: Male

DRUGS (3)
  1. AMOXI-CLAV [Concomitant]
     Active Substance: AMOXICILLIN\CLAVULANATE POTASSIUM
     Indication: PRODUCT USED FOR UNKNOWN INDICATION
     Dosage: UNK
     Route: 065
  2. POTASSIUM CHLORIDE. [Concomitant]
     Active Substance: POTASSIUM CHLORIDE
     Indication: PRODUCT USED FOR UNKNOWN INDICATION
     Dosage: UNK
     Route: 065
  3. TERBINAFINE. [Suspect]
     Active Substance: TERBINAFINE
     Indication: PRODUCT USED FOR UNKNOWN INDICATION
     Dosage: UNK
     Dates: start: 20150603, end: 20150623

REACTIONS (7)
  - Drug hypersensitivity [Unknown]
  - Malignant neoplasm progression [Unknown]
  - Abdominal distension [Recovering/Resolving]
  - Cushing^s syndrome [Unknown]
  - Faecal volume decreased [Unknown]
  - Nephrolithiasis [Unknown]
  - Dysphagia [Unknown]
